FAERS Safety Report 13601661 (Version 1)
Quarter: 2017Q2

REPORT INFORMATION
  Report Type: Spontaneous
  Country: FR (occurrence: FR)
  Receive Date: 20170601
  Receipt Date: 20170601
  Transmission Date: 20170830
  Serious: Yes (Other)
  Sender: FDA-Public Use
  Company Number: FR-LUPIN PHARMACEUTICALS INC.-2017-02664

PATIENT
  Age: 73 Year
  Sex: Female
  Weight: 52 kg

DRUGS (3)
  1. TENORETIC [Concomitant]
     Active Substance: ATENOLOL\CHLORTHALIDONE
     Indication: HYPERTENSION
     Dosage: 50 MG/ 12.5 MG
     Route: 065
     Dates: start: 2015
  2. PAROXETINE. [Suspect]
     Active Substance: PAROXETINE
     Indication: DEPRESSION
     Dosage: 10 MG, QD
     Route: 048
     Dates: start: 20170401, end: 201704
  3. PAROXETINE. [Suspect]
     Active Substance: PAROXETINE
     Dosage: 20 MG, QD
     Route: 048
     Dates: start: 201704, end: 20170504

REACTIONS (12)
  - Weight decreased [Recovering/Resolving]
  - Paraesthesia [Recovered/Resolved]
  - Vomiting [Recovered/Resolved]
  - Hyperhidrosis [Recovered/Resolved]
  - Vision blurred [Recovering/Resolving]
  - Panic attack [Unknown]
  - Insomnia [Unknown]
  - Abdominal pain upper [Recovering/Resolving]
  - Vertigo [Recovered/Resolved]
  - Nightmare [Not Recovered/Not Resolved]
  - Tachycardia [Not Recovered/Not Resolved]
  - Anxiety [Unknown]

NARRATIVE: CASE EVENT DATE: 20170501
